FAERS Safety Report 9456263 (Version 2)
Quarter: 2014Q1

REPORT INFORMATION
  Report Type: Spontaneous
  Country: US (occurrence: US)
  Receive Date: 20130813
  Receipt Date: 20140311
  Transmission Date: 20141002
  Serious: Yes (Hospitalization)
  Sender: FDA-Public Use
  Company Number: US-GLAXOSMITHKLINE-A1008028A

PATIENT
  Age: 63 Year
  Sex: Male

DRUGS (7)
  1. COREG [Suspect]
     Indication: ARRHYTHMIA
     Dosage: 6.25MG TWICE PER DAY
     Route: 048
     Dates: start: 1999, end: 20130106
  2. COREG CR [Suspect]
     Indication: ARRHYTHMIA
     Dosage: 20MG PER DAY
     Route: 048
     Dates: start: 20130106
  3. CARVEDILOL [Suspect]
     Indication: VENTRICULAR TACHYCARDIA
     Dosage: 6.25MG TWICE PER DAY
     Route: 048
  4. COUMADIN [Concomitant]
  5. VITAMIN D3 [Concomitant]
  6. VITAMIN D3 [Concomitant]
  7. COQ10 [Concomitant]

REACTIONS (21)
  - Atrial fibrillation [Unknown]
  - Fatigue [Not Recovered/Not Resolved]
  - Dizziness [Not Recovered/Not Resolved]
  - Paraesthesia oral [Unknown]
  - Glossodynia [Unknown]
  - Tremor [Unknown]
  - Peripheral coldness [Unknown]
  - Photopsia [Unknown]
  - Dyspnoea [Unknown]
  - Chest pain [Unknown]
  - Headache [Not Recovered/Not Resolved]
  - Ventricular extrasystoles [Unknown]
  - Supraventricular extrasystoles [Unknown]
  - Feeling abnormal [Unknown]
  - Abdominal pain upper [Unknown]
  - Alopecia [Unknown]
  - Tachyarrhythmia [Unknown]
  - Overdose [Unknown]
  - Adverse event [Unknown]
  - Arrhythmia [Unknown]
  - Asthenia [Not Recovered/Not Resolved]
